FAERS Safety Report 9045872 (Version 1)
Quarter: 2013Q1

REPORT INFORMATION
  Report Type: Report from Study
  Country: US (occurrence: US)
  Receive Date: 20130201
  Receipt Date: 20130201
  Transmission Date: 20140127
  Serious: No
  Sender: FDA-Public Use
  Company Number: US-ABBOTT-12P-163-1023319-00

PATIENT
  Age: 27 Year
  Sex: Female

DRUGS (8)
  1. HUMIRA [Suspect]
     Indication: CROHN^S DISEASE
     Dates: start: 20121004, end: 20121004
  2. HUMIRA [Suspect]
     Dates: start: 20121018, end: 20121018
  3. HUMIRA [Suspect]
  4. ZOLOFT [Concomitant]
     Indication: ANXIETY
     Dosage: 50 MG DAILY
  5. ZYRTEC [Concomitant]
     Indication: RASH
  6. METROCREAM [Concomitant]
     Indication: PRODUCT USED FOR UNKNOWN INDICATION
  7. BIAFINE [Concomitant]
     Indication: PRODUCT USED FOR UNKNOWN INDICATION
  8. AZATHIOPRINE [Concomitant]
     Indication: PRODUCT USED FOR UNKNOWN INDICATION
     Dosage: 15 OR 25 MG
     Dates: end: 201212

REACTIONS (2)
  - Dermatitis [Recovering/Resolving]
  - Injection site pain [Recovering/Resolving]
